FAERS Safety Report 4743945-5 (Version None)
Quarter: 2005Q3

REPORT INFORMATION
  Report Type: 
  Country: None (occurrence: None)
  Receive Date: 20050809
  Receipt Date: 20050802
  Transmission Date: 20060218
  Serious: Yes (Hospitalization, Other)
  Sender: FDA-Public Use
  Company Number: 2005110392

PATIENT
  Age: 68 Year
  Sex: Female

DRUGS (6)
  1. FRAGMIN [Suspect]
     Indication: THROMBOSIS
     Dosage: 15000 I.U. (15000 I.U., 1 IN 1 D)
     Dates: start: 20050401
  2. DILTIAZEM HYDROCHLORIDE [Concomitant]
  3. ACETYLSALICYLIC ACID SRT [Concomitant]
  4. CHEMOTHERAPY NOS (CHEMOTHERAPY NOS) [Concomitant]
  5. PREDNISONE [Concomitant]
  6. AREDIA [Concomitant]

REACTIONS (2)
  - CEREBROVASCULAR ACCIDENT [None]
  - THROMBOSIS [None]
